FAERS Safety Report 7004979-3 (Version None)
Quarter: 2010Q3

REPORT INFORMATION
  Report Type: 
  Country: None (occurrence: None)
  Receive Date: 20100921
  Receipt Date: 20100909
  Transmission Date: 20110219
  Serious: Yes (Other)
  Sender: FDA-Public Use
  Company Number: US-SANOFI-AVENTIS-2010SA055270

PATIENT
  Age: 86 Year
  Sex: Male
  Weight: 79.36 kg

DRUGS (5)
  1. PLAVIX [Suspect]
     Route: 048
     Dates: start: 19900101
  2. ASPIRIN [Concomitant]
  3. FOLIC ACID [Concomitant]
  4. IRON [Concomitant]
  5. ALL OTHER THERAPEUTIC PRODUCTS [Concomitant]

REACTIONS (3)
  - ARTERIAL OCCLUSIVE DISEASE [None]
  - EMBOLIC STROKE [None]
  - VISUAL FIELD DEFECT [None]
